FAERS Safety Report 7517117-5 (Version None)
Quarter: 2011Q2

REPORT INFORMATION
  Report Type: 
  Country: None (occurrence: None)
  Receive Date: 20110506
  Receipt Date: 20110106
  Transmission Date: 20111010
  Serious: Yes (Other)
  Sender: FDA-Public Use
  Company Number: AUR-APL-2011-00218

PATIENT
  Age: 36 Year
  Sex: Female
  Weight: 63.49 kg

DRUGS (9)
  1. KLONOPIN [Concomitant]
  2. OXCARBAZEPINE [Concomitant]
  3. VENLAFAXINE HCL [Suspect]
     Indication: BIPOLAR DISORDER
  4. VENLAFAXINE HCL [Suspect]
     Indication: DEPRESSION
  5. VENLAFAXINE HCL [Suspect]
     Indication: ANXIETY
  6. EFFEXOR [Suspect]
     Indication: DEPRESSION
     Dosage: 150MG-DAILY-ORAL, 2007-ONGOING
     Route: 048
  7. EFFEXOR [Suspect]
     Indication: ANXIETY
     Dosage: 150MG-DAILY-ORAL, 2007-ONGOING
     Route: 048
  8. EFFEXOR [Suspect]
     Indication: BIPOLAR DISORDER
     Dosage: 150MG-DAILY-ORAL, 2007-ONGOING
     Route: 048
  9. ABILITY [Concomitant]

REACTIONS (5)
  - SUICIDAL IDEATION [None]
  - DEPRESSION [None]
  - DRUG INEFFECTIVE [None]
  - BACK PAIN [None]
  - IRRITABILITY [None]
